FAERS Safety Report 18229587 (Version 1)
Quarter: 2020Q3

REPORT INFORMATION
  Report Type: Spontaneous
  Country: FR (occurrence: FR)
  Receive Date: 20200903
  Receipt Date: 20200903
  Transmission Date: 20201103
  Serious: Yes (Life-Threatening, Hospitalization)
  Sender: FDA-Public Use
  Company Number: NVSC2020FR242207

PATIENT
  Age: 66 Year
  Sex: Male
  Weight: 82.5 kg

DRUGS (2)
  1. PREDNISOLONE. [Suspect]
     Active Substance: PREDNISOLONE
     Indication: DYSPNOEA
     Dosage: 80 MG, QD
     Route: 048
     Dates: start: 20200520, end: 20200526
  2. NAPROXENE [Suspect]
     Active Substance: NAPROXEN
     Indication: ARTHRALGIA
     Dosage: 550 MG, QD
     Route: 048
     Dates: start: 20200520, end: 20200526

REACTIONS (1)
  - Lung disorder [Recovering/Resolving]

NARRATIVE: CASE EVENT DATE: 20200526
